FAERS Safety Report 5400521-9 (Version None)
Quarter: 2007Q3

REPORT INFORMATION
  Report Type: 
  Country: None (occurrence: None)
  Receive Date: 20070730
  Receipt Date: 20070725
  Transmission Date: 20080115
  Serious: Yes (Other)
  Sender: FDA-Public Use
  Company Number: US-GENENTECH-237599

PATIENT
  Sex: Male
  Weight: 82.086 kg

DRUGS (17)
  1. XOLAIR [Suspect]
     Indication: ASTHMA
     Dosage: 150 MG, 1/MONTH
     Route: 058
     Dates: start: 20050609
  2. ADVAIR DISKUS 100/50 [Concomitant]
     Indication: DRUG USE FOR UNKNOWN INDICATION
  3. PREDNISONE TAB [Concomitant]
     Indication: DRUG USE FOR UNKNOWN INDICATION
  4. FLONASE [Concomitant]
     Indication: DRUG USE FOR UNKNOWN INDICATION
  5. ZYRTEC [Concomitant]
     Indication: DRUG USE FOR UNKNOWN INDICATION
  6. SINGULAIR [Concomitant]
     Indication: DRUG USE FOR UNKNOWN INDICATION
  7. OS-CAL +D [Concomitant]
     Indication: DRUG USE FOR UNKNOWN INDICATION
  8. BACTRIM DS [Concomitant]
     Indication: DRUG USE FOR UNKNOWN INDICATION
  9. TRUVADA [Concomitant]
     Indication: DRUG USE FOR UNKNOWN INDICATION
  10. SUSTIVA [Concomitant]
     Indication: DRUG USE FOR UNKNOWN INDICATION
  11. FOSAMAX [Concomitant]
     Indication: DRUG USE FOR UNKNOWN INDICATION
  12. ASTELIN [Concomitant]
     Indication: DRUG USE FOR UNKNOWN INDICATION
  13. SPIRIVA [Concomitant]
     Indication: DRUG USE FOR UNKNOWN INDICATION
  14. ATIVAN [Concomitant]
     Indication: DRUG USE FOR UNKNOWN INDICATION
  15. PROTONIX [Concomitant]
     Indication: DRUG USE FOR UNKNOWN INDICATION
  16. SEROQUEL [Concomitant]
     Indication: DRUG USE FOR UNKNOWN INDICATION
  17. XOPENEX [Concomitant]
     Indication: DRUG USE FOR UNKNOWN INDICATION

REACTIONS (3)
  - ANAPHYLACTIC REACTION [None]
  - DYSPNOEA [None]
  - URTICARIA [None]
